FAERS Safety Report 23984367 (Version 2)
Quarter: 2024Q2

REPORT INFORMATION
  Report Type: Report from Study
  Country: BR (occurrence: BR)
  Receive Date: 20240618
  Receipt Date: 20240620
  Transmission Date: 20240716
  Serious: Yes (Other)
  Sender: FDA-Public Use
  Company Number: BR-CELLTRION INC.-2022BR013161

PATIENT

DRUGS (9)
  1. INFLIXIMAB [Suspect]
     Active Substance: INFLIXIMAB
     Indication: Product used for unknown indication
     Dosage: 8 AMPOULES EVERY 8 WEEKS
     Route: 042
     Dates: start: 20220819
  2. SULFASALAZINE [Concomitant]
     Active Substance: SULFASALAZINE
     Indication: Crohn^s disease
     Dosage: 2 PILLS EVERY 6 HOURS; START DATE: 30 YEARS AGO
     Route: 048
  3. CALCIUM [Concomitant]
     Active Substance: CALCIUM
     Indication: Supplementation therapy
     Dosage: 1 PILL A DAY; START DATE: 8 YEARS AGO
     Route: 048
  4. VITAMIN D3 [Concomitant]
     Active Substance: CHOLECALCIFEROL
     Indication: Supplementation therapy
     Dosage: 10 DROPS PER WEEK; START DATE: 4 YEARS AGO
     Route: 048
  5. LOSARTAN [Concomitant]
     Active Substance: LOSARTAN
     Indication: Hypertension
     Dosage: 2 PILLS EVERY 12 HOURS; START DATE: 15 YEARS AGO
     Route: 048
  6. AMLODIPINE [Concomitant]
     Active Substance: AMLODIPINE BESYLATE
     Indication: Hypertension
     Dosage: 2 PILLS A DAY; START DATE: 10 YEARS AGO
     Route: 048
  7. HYDROCHLOROTHIAZIDE [Concomitant]
     Active Substance: HYDROCHLOROTHIAZIDE
     Indication: Hypertension
     Dosage: 2 PILLS A DAY; START DATE: 15 YEARS AGO
     Route: 048
  8. ATENOLOL [Concomitant]
     Active Substance: ATENOLOL
     Indication: Hypertension
     Dosage: 2 PILLS A DAY; START DATE: 6 MONTHS
     Route: 048
  9. ASPIRIN [Concomitant]
     Active Substance: ASPIRIN
     Indication: Hypertension
     Dosage: 1 PILL A DAY; START DATE: 6 MONTHS AGO
     Route: 048

REACTIONS (18)
  - Crohn^s disease [Unknown]
  - Urinary tract infection [Recovering/Resolving]
  - Symptom recurrence [Unknown]
  - Throat irritation [Unknown]
  - Eating disorder [Unknown]
  - Illness [Recovering/Resolving]
  - Diarrhoea [Recovering/Resolving]
  - Vomiting [Recovering/Resolving]
  - Abdominal pain [Recovering/Resolving]
  - Hypertension [Recovering/Resolving]
  - Arthralgia [Unknown]
  - Pain [Unknown]
  - Erythema [Unknown]
  - Cough [Unknown]
  - Urinary tract infection [Unknown]
  - Therapeutic response shortened [Unknown]
  - Product dose omission issue [Unknown]
  - Intentional dose omission [Unknown]

NARRATIVE: CASE EVENT DATE: 20240519
